FAERS Safety Report 10172459 (Version 3)
Quarter: 2014Q4

REPORT INFORMATION
  Report Type: Spontaneous
  Country: US (occurrence: US)
  Receive Date: 20140515
  Receipt Date: 20141015
  Transmission Date: 20150528
  Serious: Yes (Hospitalization, Other)
  Sender: FDA-Public Use
  Company Number: US-BAYER-2014-069118

PATIENT
  Age: 32 Year
  Sex: Female
  Weight: 236 kg

DRUGS (1)
  1. MIRENA [Suspect]
     Active Substance: LEVONORGESTREL
     Indication: CONTRACEPTION
     Dosage: 20 MCG/24HR, CONT
     Route: 015
     Dates: start: 20070718, end: 20120716

REACTIONS (8)
  - Pain [None]
  - Uterine perforation [None]
  - Emotional distress [None]
  - Device difficult to use [None]
  - Injury [None]
  - Pelvic pain [None]
  - Genital haemorrhage [None]
  - Dyspareunia [None]

NARRATIVE: CASE EVENT DATE: 20091103
